FAERS Safety Report 22133483 (Version 1)
Quarter: 2023Q1

REPORT INFORMATION
  Report Type: Spontaneous
  Country: None (occurrence: US)
  Receive Date: 20230324
  Receipt Date: 20230324
  Transmission Date: 20230418
  Serious: No
  Sender: FDA-Public Use
  Company Number: US-Ajanta Pharma USA Inc.-2139480

PATIENT
  Age: 71 Year
  Sex: Male
  Weight: 72.727 kg

DRUGS (4)
  1. TADALAFIL [Suspect]
     Active Substance: TADALAFIL
     Indication: Erectile dysfunction
     Route: 048
     Dates: start: 202109
  2. DUPIXENT [Concomitant]
     Active Substance: DUPILUMAB
  3. LISINOPRIL [Concomitant]
     Active Substance: LISINOPRIL
  4. TAMSULOSIN HYDROCHLORIDE [Concomitant]
     Active Substance: TAMSULOSIN HYDROCHLORIDE

REACTIONS (3)
  - Rash macular [Recovering/Resolving]
  - Photosensitivity reaction [Not Recovered/Not Resolved]
  - Drug eruption [Recovering/Resolving]

NARRATIVE: CASE EVENT DATE: 20230101
